FAERS Safety Report 23194903 (Version 1)
Quarter: 2023Q4

REPORT INFORMATION
  Report Type: Report from Study
  Country: US (occurrence: None)
  Receive Date: 20231117
  Receipt Date: 20231117
  Transmission Date: 20240109
  Serious: Yes (Death, Life-Threatening, Hospitalization, Disabling, Other)
  Sender: FDA-Public Use
  Company Number: US-ROCHE-3458554

PATIENT
  Age: 65 Year
  Sex: Male
  Weight: 161.3 kg

DRUGS (17)
  1. ATEZOLIZUMAB [Suspect]
     Active Substance: ATEZOLIZUMAB
     Indication: Small cell lung cancer extensive stage
     Route: 065
     Dates: start: 20220701, end: 20220721
  2. TALAZOPARIB [Suspect]
     Active Substance: TALAZOPARIB
     Indication: Small cell lung cancer extensive stage
     Route: 048
     Dates: start: 20220701, end: 20220805
  3. ASPIRIN [Concomitant]
     Active Substance: ASPIRIN
  4. FLUTICASONE [Concomitant]
     Active Substance: FLUTICASONE
  5. UMECLIDINIUM [Concomitant]
     Active Substance: UMECLIDINIUM
  6. VILANTEROL [Concomitant]
     Active Substance: VILANTEROL
  7. ACETAMINOPHEN [Concomitant]
     Active Substance: ACETAMINOPHEN
  8. HYDROCODONE [Concomitant]
     Active Substance: HYDROCODONE
  9. EMLA [Concomitant]
     Active Substance: LIDOCAINE\PRILOCAINE
  10. METFORMIN HYDROCHLORIDE [Concomitant]
     Active Substance: METFORMIN HYDROCHLORIDE
  11. METOPROLOLTARTRAT [Concomitant]
  12. ONDANSETRON [Concomitant]
     Active Substance: ONDANSETRON
  13. PROMETHAZINE [Concomitant]
     Active Substance: PROMETHAZINE HYDROCHLORIDE
  14. TERAZOSIN [Concomitant]
     Active Substance: TERAZOSIN HYDROCHLORIDE
  15. TRELEGY ELLIPTA [Concomitant]
     Active Substance: FLUTICASONE FUROATE\UMECLIDINIUM BROMIDE\VILANTEROL TRIFENATATE
  16. VALSARTAN [Concomitant]
     Active Substance: VALSARTAN
  17. FISH OIL\OMEGA-3 FATTY ACIDS [Concomitant]
     Active Substance: FISH OIL\OMEGA-3 FATTY ACIDS

REACTIONS (17)
  - Alanine aminotransferase increased [Recovered/Resolved]
  - Anaemia [Unknown]
  - Aspartate aminotransferase increased [Not Recovered/Not Resolved]
  - Cardiac arrest [Not Recovered/Not Resolved]
  - Troponin I increased [Not Recovered/Not Resolved]
  - Blood creatinine [Unknown]
  - Dyspnoea [Not Recovered/Not Resolved]
  - Brain oedema [Not Recovered/Not Resolved]
  - Hyperglycaemia [Not Recovered/Not Resolved]
  - Brain natriuretic peptide increased [Unknown]
  - Leukocytosis [Unknown]
  - Pneumonia [Not Recovered/Not Resolved]
  - Platelet count decreased [Not Recovered/Not Resolved]
  - Embolism [Not Recovered/Not Resolved]
  - Hypernatraemia [Not Recovered/Not Resolved]
  - Seizure [Unknown]
  - Sepsis [Fatal]

NARRATIVE: CASE EVENT DATE: 20220805
